FAERS Safety Report 16506179 (Version 2)
Quarter: 2019Q3

REPORT INFORMATION
  Report Type: Report from Study
  Country: US (occurrence: US)
  Receive Date: 20190701
  Receipt Date: 20190923
  Transmission Date: 20191004
  Serious: Yes (Other)
  Sender: FDA-Public Use
  Company Number: US-MALLINCKRODT-T201902240

PATIENT
  Sex: Female
  Weight: 75 kg

DRUGS (5)
  1. CORTISONE [Suspect]
     Active Substance: CORTISONE
     Indication: CARPAL TUNNEL SYNDROME
  2. REPOSITORY CORTICOTROPIN INJECTION [Suspect]
     Active Substance: CORTICOTROPIN
     Dosage: 80 UNITS/1 ML, 2 TIMES PER WEEK (SUNDAY, WEDNESDAY)
     Route: 065
  3. REPOSITORY CORTICOTROPIN INJECTION [Suspect]
     Active Substance: CORTICOTROPIN
     Indication: POLYMYOSITIS
     Dosage: 80 UNITS/1 ML, 2 TIMES PER WEEK
     Route: 065
     Dates: start: 20180301
  4. REPOSITORY CORTICOTROPIN INJECTION [Suspect]
     Active Substance: CORTICOTROPIN
     Dosage: 80UNITS/ML, EVERY DAY (APPROXIMATELY THREE WEEKS)
     Route: 065
  5. CORTISONE [Suspect]
     Active Substance: CORTISONE
     Indication: PAIN IN EXTREMITY
     Dosage: ONCE EVERY 6 MONTHS
     Route: 065

REACTIONS (21)
  - Gait disturbance [Not Recovered/Not Resolved]
  - Ephelides [Unknown]
  - Osteoporosis [Unknown]
  - Apparent death [Unknown]
  - Sensitivity to weather change [Not Recovered/Not Resolved]
  - Scar [Recovering/Resolving]
  - Hepatic steatosis [Unknown]
  - Fluid retention [Not Recovered/Not Resolved]
  - Increased appetite [Unknown]
  - Abscess [Unknown]
  - Nausea [Recovered/Resolved]
  - Mammogram abnormal [Unknown]
  - Condition aggravated [Not Recovered/Not Resolved]
  - Fatigue [Recovered/Resolved]
  - Polymyositis [Not Recovered/Not Resolved]
  - Weight increased [Recovering/Resolving]
  - Arthralgia [Unknown]
  - Blood pressure increased [Not Recovered/Not Resolved]
  - Memory impairment [Unknown]
  - Road traffic accident [Unknown]
  - Gastrointestinal ulcer haemorrhage [Recovered/Resolved]
